FAERS Safety Report 4640542-7 (Version None)
Quarter: 2005Q2

REPORT INFORMATION
  Report Type: 
  Country: None (occurrence: None)
  Receive Date: 20050328
  Receipt Date: 20050201
  Transmission Date: 20051028
  Serious: No
  Sender: FDA-Public Use
  Company Number: USA050289684

PATIENT
  Age: 42 Year
  Sex: Male

DRUGS (4)
  1. STRATTERA [Suspect]
     Indication: ATTENTION DEFICIT/HYPERACTIVITY DISORDER
     Dosage: 80 MG DAY
     Dates: start: 20040801
  2. LEXAPRO [Concomitant]
  3. KLONOPIN [Concomitant]
  4. TRAZADONE (TRAZODONE) [Concomitant]

REACTIONS (11)
  - AGITATION [None]
  - BALANCE DISORDER [None]
  - CHROMATURIA [None]
  - DIARRHOEA [None]
  - DIZZINESS [None]
  - FAECAL INCONTINENCE [None]
  - INTRACRANIAL PRESSURE INCREASED [None]
  - IRRITABLE BOWEL SYNDROME [None]
  - LIBIDO DECREASED [None]
  - URINE FLOW DECREASED [None]
  - URINE OUTPUT DECREASED [None]
